FAERS Safety Report 5376083-1 (Version None)
Quarter: 2007Q2

REPORT INFORMATION
  Report Type: 
  Country: None (occurrence: None)
  Receive Date: 20070628
  Receipt Date: 20070628
  Transmission Date: 20071010
  Serious: Yes (Hospitalization)
  Sender: FDA-Public Use
  Company Number: None

PATIENT
  Age: 54 Year
  Sex: Female

DRUGS (15)
  1. CETUXIMAB [Suspect]
     Indication: BREAST CANCER STAGE IV
     Dosage: 250MG/M2 WEEKLY IV
     Route: 042
     Dates: start: 20070302, end: 20070322
  2. CARBOPLATIN [Suspect]
     Indication: BREAST CANCER STAGE IV
     Dosage: AUC 2 WEEKLY 3 OF 4 WEEK IV
     Route: 042
     Dates: start: 20070302, end: 20070316
  3. LEVOTHYROXINE SODIUM [Concomitant]
  4. BUPROPION HCL [Concomitant]
  5. METOPROLOL SUCCINATE [Concomitant]
  6. LITHIUM CARBONATE [Concomitant]
  7. DIVALPROEX SODIUM ER [Concomitant]
  8. SENNA [Concomitant]
  9. DOCUSATE SODIUM [Concomitant]
  10. BISACODYL [Concomitant]
  11. LIDOCAINE [Concomitant]
  12. GABAPENTIN [Concomitant]
  13. IBUPROFEN [Concomitant]
  14. OXYCODONE ER (OXYCONTIN) [Concomitant]
  15. MORPHINE SULFATE [Concomitant]

REACTIONS (14)
  - ASTHENIA [None]
  - COORDINATION ABNORMAL [None]
  - DISEASE PROGRESSION [None]
  - DROOLING [None]
  - DYSPHAGIA [None]
  - DYSPNOEA [None]
  - JOINT RANGE OF MOTION DECREASED [None]
  - LETHARGY [None]
  - PERIPHERAL MOTOR NEUROPATHY [None]
  - PNEUMONIA [None]
  - RESPIRATORY DISTRESS [None]
  - RESPIRATORY FAILURE [None]
  - SOMNOLENCE [None]
  - TREMOR [None]
